FAERS Safety Report 25449269 (Version 1)
Quarter: 2025Q2

REPORT INFORMATION
  Report Type: Spontaneous
  Country: GB (occurrence: GB)
  Receive Date: 20250618
  Receipt Date: 20250618
  Transmission Date: 20250716
  Serious: Yes (Hospitalization, Other)
  Sender: ACCORD
  Company Number: None

PATIENT
  Sex: Female

DRUGS (7)
  1. FUROSEMIDE [Suspect]
     Active Substance: FUROSEMIDE
     Indication: Peripheral swelling
     Dosage: 40 MG TABLET ONCE A DAY
     Dates: start: 20250211, end: 20250218
  2. CALCIUM CARBONATE\CHOLECALCIFEROL [Concomitant]
     Active Substance: CALCIUM CARBONATE\CHOLECALCIFEROL
  3. ALENDRONIC ACID [Concomitant]
     Active Substance: ALENDRONIC ACID
  4. APIXABAN [Concomitant]
     Active Substance: APIXABAN
     Indication: Thrombosis
  5. BENDROFLUMETHIAZIDE [Concomitant]
     Active Substance: BENDROFLUMETHIAZIDE
  6. PREDNISOLONE [Concomitant]
     Active Substance: PREDNISOLONE
  7. FLUCLOXACILLIN [Concomitant]
     Active Substance: FLUCLOXACILLIN

REACTIONS (9)
  - Blood electrolytes decreased [Unknown]
  - Tremor [Recovering/Resolving]
  - Confusional state [Recovering/Resolving]
  - Hallucination [Unknown]
  - Circulatory collapse [Unknown]
  - Blood potassium decreased [Unknown]
  - Dysarthria [Recovering/Resolving]
  - Fall [Unknown]
  - Memory impairment [Recovering/Resolving]

NARRATIVE: CASE EVENT DATE: 20250217
